FAERS Safety Report 14149943 (Version 1)
Quarter: 2017Q4

REPORT INFORMATION
  Report Type: Spontaneous
  Country: IR (occurrence: IR)
  Receive Date: 20171101
  Receipt Date: 20171101
  Transmission Date: 20180321
  Serious: Yes (Other)
  Sender: FDA-Public Use
  Company Number: IR-EDENBRIDGE PHARMACEUTICALS, LLC-IR-2017EDE000183

PATIENT
  Age: 17 Year
  Sex: Female
  Weight: 45 kg

DRUGS (4)
  1. TACROLIMUS. [Suspect]
     Active Substance: TACROLIMUS
     Indication: IMMUNOSUPPRESSION
     Dosage: UNK
  2. GANCICLOVIR /00784202/ [Suspect]
     Active Substance: GANCICLOVIR SODIUM
     Indication: PROPHYLAXIS
     Dosage: UNK
  3. GANCICLOVIR                        /00784202/ [Suspect]
     Active Substance: GANCICLOVIR SODIUM
     Indication: IMMUNOSUPPRESSION
  4. PREDNISOLONE SODIUM PHOSPHATE. [Suspect]
     Active Substance: PREDNISOLONE SODIUM PHOSPHATE
     Indication: IMMUNOSUPPRESSION
     Dosage: UNK

REACTIONS (1)
  - Post transplant lymphoproliferative disorder [Recovered/Resolved]
